FAERS Safety Report 4974108-6 (Version None)
Quarter: 2006Q1

REPORT INFORMATION
  Report Type: 
  Country: None (occurrence: None)
  Receive Date: 20060130
  Receipt Date: 20050621
  Transmission Date: 20060701
  Serious: No
  Sender: FDA-Public Use
  Company Number: COT_0306_2005

PATIENT
  Age: 46 Year
  Sex: Female
  Weight: 69.8539 kg

DRUGS (9)
  1. VENTAVIS [Suspect]
     Indication: PULMONARY HYPERTENSION
     Dosage: 5 MCG 6 TO 9X/DAY IH
     Route: 055
     Dates: start: 20050405
  2. VENTAVIS [Suspect]
     Indication: PULMONARY HYPERTENSION
     Dosage: 5 MCG VARIABLE IH
     Route: 055
  3. VENTAVIS [Suspect]
     Indication: PULMONARY HYPERTENSION
     Dosage: 5 MCG VARIABLE IH
     Route: 055
  4. VENTAVIS [Suspect]
     Indication: PULMONARY HYPERTENSION
     Dosage: 2.5 MG ONCE IH
     Route: 055
     Dates: start: 20050405, end: 20050405
  5. OXYGEN [Concomitant]
  6. DIGOXIN [Concomitant]
  7. WARFARIN [Concomitant]
  8. ALLOPURINOL [Concomitant]
  9. BICITRA [Concomitant]

REACTIONS (7)
  - COUGH [None]
  - DIZZINESS [None]
  - FLUSHING [None]
  - HEADACHE [None]
  - KIDNEY INFECTION [None]
  - NAUSEA [None]
  - VOMITING [None]
